FAERS Safety Report 6337172-8 (Version None)
Quarter: 2009Q3

REPORT INFORMATION
  Report Type: 
  Country: None (occurrence: None)
  Receive Date: 20090831
  Receipt Date: 20090819
  Transmission Date: 20100115
  Serious: Yes (Hospitalization, Other)
  Sender: FDA-Public Use
  Company Number: 2009AP003378

PATIENT
  Age: 85 Year
  Sex: Female

DRUGS (6)
  1. CITALOPRAM HYDROBROMIDE [Suspect]
     Indication: DEPENDENCE
     Dosage: 20 MG; PO
     Route: 048
     Dates: start: 20090722, end: 20090728
  2. CALCIUM CARBONATE [Concomitant]
  3. COLECALCIFEROL (COLECALCIFEROL) [Concomitant]
  4. ALENDRONIC ACID (ALENDRONIC ACID) [Concomitant]
  5. BETAHISTINE HYDROCHLORIDE (BETAHISTINE HYDROCHLORIDE) [Concomitant]
  6. STRONTIUM RANELATE (STRONTIUM RANELATE) [Concomitant]

REACTIONS (2)
  - HYPONATRAEMIA [None]
  - LETHARGY [None]
